FAERS Safety Report 15012344 (Version 1)
Quarter: 2018Q2

REPORT INFORMATION
  Report Type: Spontaneous
  Country: CZ (occurrence: CZ)
  Receive Date: 20180614
  Receipt Date: 20180614
  Transmission Date: 20180711
  Serious: Yes (Other)
  Sender: FDA-Public Use
  Company Number: CZ-PFIZER INC-2018238473

PATIENT
  Age: 75 Year
  Sex: Male
  Weight: 82 kg

DRUGS (2)
  1. LYRICA [Suspect]
     Active Substance: PREGABALIN
     Indication: POLYNEUROPATHY
     Dosage: 150 MG, ONCE DAILY IN THE EVENING
     Route: 048
     Dates: start: 201706, end: 201804
  2. ITAKEM [Concomitant]
     Indication: MENTAL DISORDER
     Dosage: 5 MG, ONCE DAILY IN THE EVENING
     Route: 048
     Dates: start: 2008

REACTIONS (9)
  - Fall [Unknown]
  - Sleep disorder [Unknown]
  - Muscle tightness [Recovering/Resolving]
  - Vision blurred [Unknown]
  - Somnolence [Unknown]
  - Gait disturbance [Unknown]
  - Urinary incontinence [Unknown]
  - Dizziness [Unknown]
  - Injury [Unknown]

NARRATIVE: CASE EVENT DATE: 20180301
